FAERS Safety Report 9568540 (Version 1)
Quarter: 2013Q3

REPORT INFORMATION
  Report Type: Spontaneous
  Country: US (occurrence: US)
  Receive Date: 20130930
  Receipt Date: 20130930
  Transmission Date: 20140515
  Serious: No
  Sender: FDA-Public Use
  Company Number: US-AMGEN-USASP2013062923

PATIENT
  Age: 57 Year
  Sex: Male

DRUGS (2)
  1. ENBREL [Suspect]
     Indication: ANKYLOSING SPONDYLITIS
     Dosage: 50 MG, QWK
     Route: 065
     Dates: start: 20120130
  2. ENBREL [Suspect]
     Indication: PSORIASIS

REACTIONS (4)
  - Allergic respiratory symptom [Recovered/Resolved]
  - Chest discomfort [Recovered/Resolved]
  - Paranasal sinus hypersecretion [Recovered/Resolved]
  - Sensitivity of teeth [Recovered/Resolved]
